FAERS Safety Report 7992155-7 (Version None)
Quarter: 2011Q4

REPORT INFORMATION
  Report Type: 
  Country: None (occurrence: None)
  Receive Date: 20111219
  Receipt Date: 20110126
  Transmission Date: 20120403
  Serious: No
  Sender: FDA-Public Use
  Company Number: US-ASTRAZENECA-2011SE04959

PATIENT
  Age: 54 Year
  Sex: Female

DRUGS (1)
  1. CRESTOR [Suspect]
     Route: 048

REACTIONS (7)
  - INSOMNIA [None]
  - PIGMENTATION DISORDER [None]
  - ACNE [None]
  - PRURITUS [None]
  - RASH MORBILLIFORM [None]
  - HEADACHE [None]
  - CHEST PAIN [None]
